FAERS Safety Report 13406876 (Version 1)
Quarter: 2017Q2

REPORT INFORMATION
  Report Type: Spontaneous
  Country: GB (occurrence: GB)
  Receive Date: 20170405
  Receipt Date: 20170405
  Transmission Date: 20170830
  Serious: Yes (Other)
  Sender: FDA-Public Use
  Company Number: GB-PFIZER INC-2017141665

PATIENT
  Age: 67 Year
  Sex: Male
  Weight: 80 kg

DRUGS (11)
  1. HYDROMOL [Concomitant]
     Indication: ANTI-INFECTIVE THERAPY
     Dosage: USE AS SOAP SUBSTITUTE AND AS EMOLLIENT
     Dates: start: 20151117
  2. CIPROFLOXACIN HCL [Suspect]
     Active Substance: CIPROFLOXACIN HYDROCHLORIDE
     Dosage: UNK
     Dates: start: 20170308
  3. GLYCERYL TRINITRATE [Concomitant]
     Active Substance: NITROGLYCERIN
     Dosage: AS DIRECTED
     Dates: start: 20151117
  4. ATORVASTATIN [Concomitant]
     Active Substance: ATORVASTATIN
     Dosage: 1 DF, 1X/DAY (AT NIGHT)
     Dates: start: 20160425
  5. POLYMYXIN B SULFATE. [Concomitant]
     Active Substance: POLYMYXIN B SULFATE
     Dosage: 1 DF, 2X/DAY
     Dates: start: 20170308, end: 20170315
  6. PRASUGREL. [Concomitant]
     Active Substance: PRASUGREL
     Dosage: 1 DF, 1X/DAY (IN THE MORNING)
     Dates: start: 20160721
  7. RAMIPRIL. [Concomitant]
     Active Substance: RAMIPRIL
     Dosage: 1 DF, 1X/DAY
     Dates: start: 20161004
  8. COAL TAR. [Concomitant]
     Active Substance: COAL TAR
     Dosage: UNK (USE AS DIRECTED)
     Dates: start: 20151117
  9. NICORANDIL [Concomitant]
     Active Substance: NICORANDIL
     Dosage: 1 DF, 2X/DAY
     Dates: start: 20160817
  10. ASPIRIN. [Concomitant]
     Active Substance: ASPIRIN
     Dosage: 1 DF, 1X/DAY
     Dates: start: 20161219
  11. BISOPROLOL [Concomitant]
     Active Substance: BISOPROLOL
     Dosage: 1 DF, 1X/DAY
     Dates: start: 20160721

REACTIONS (3)
  - Dizziness [Unknown]
  - Pain [Unknown]
  - Rash [Recovered/Resolved]

NARRATIVE: CASE EVENT DATE: 20170321
